FAERS Safety Report 23181597 (Version 2)
Quarter: 2023Q4

REPORT INFORMATION
  Report Type: Spontaneous
  Country: SI (occurrence: SI)
  Receive Date: 20231114
  Receipt Date: 20231116
  Transmission Date: 20240109
  Serious: Yes (Life-Threatening, Hospitalization, Other)
  Sender: FDA-Public Use
  Company Number: SI-SA-2023SA342730

PATIENT
  Age: 24 Year
  Sex: Male

DRUGS (2)
  1. ASPIRIN [Suspect]
     Active Substance: ASPIRIN
     Indication: Antiplatelet therapy
     Dosage: 100 MG
     Dates: start: 2022, end: 2022
  2. CLOPIDOGREL BISULFATE [Suspect]
     Active Substance: CLOPIDOGREL BISULFATE
     Indication: Antiplatelet therapy
     Dosage: 75 MG
     Dates: start: 2022, end: 2022

REACTIONS (16)
  - Interstitial lung disease [Recovered/Resolved]
  - Wheezing [Recovered/Resolved]
  - Lung consolidation [Recovered/Resolved]
  - Lung opacity [Recovered/Resolved]
  - Dyspnoea [Recovered/Resolved]
  - Urticarial vasculitis [Recovered/Resolved]
  - Cutaneous vasculitis [Recovered/Resolved]
  - Rash [Recovered/Resolved]
  - Erythema [Recovered/Resolved]
  - Skin plaque [Recovered/Resolved]
  - Urticaria [Recovered/Resolved]
  - Pruritus [Recovered/Resolved]
  - Arthralgia [Recovered/Resolved]
  - Respiratory distress [Recovered/Resolved]
  - Angioedema [Recovered/Resolved]
  - Lymphadenopathy [Recovered/Resolved]

NARRATIVE: CASE EVENT DATE: 20220101
